FAERS Safety Report 6640306-9 (Version None)
Quarter: 2010Q1

REPORT INFORMATION
  Report Type: 
  Country: None (occurrence: None)
  Receive Date: 20100318
  Receipt Date: 20100309
  Transmission Date: 20100710
  Serious: Yes (Hospitalization)
  Sender: FDA-Public Use
  Company Number: FR-ROCHE-690741

PATIENT
  Age: 65 Year
  Sex: Female

DRUGS (5)
  1. AVASTIN [Suspect]
     Indication: OVARIAN CANCER RECURRENT
     Dosage: THREE CYCLES
     Route: 065
  2. CARBOPLATIN [Concomitant]
     Indication: OVARIAN CANCER RECURRENT
     Dosage: THREE CYCLES
  3. CARBOPLATIN [Concomitant]
     Dosage: THREE CYCLES
  4. OXALIPLATINE [Concomitant]
     Indication: OVARIAN CANCER RECURRENT
  5. OXALIPLATINE [Concomitant]

REACTIONS (4)
  - HYPERTENSION [None]
  - PROTEINURIA [None]
  - RENAL FAILURE [None]
  - THROMBOTIC MICROANGIOPATHY [None]
